FAERS Safety Report 17781435 (Version 1)
Quarter: 2020Q2

REPORT INFORMATION
  Report Type: Spontaneous
  Country: FR (occurrence: FR)
  Receive Date: 20200513
  Receipt Date: 20200513
  Transmission Date: 20200714
  Serious: Yes (Other)
  Sender: FDA-Public Use
  Company Number: FR-MYLANLABS-2020M1046033

PATIENT
  Age: 70 Year
  Sex: Male

DRUGS (2)
  1. VORICONAZOLE. [Suspect]
     Active Substance: VORICONAZOLE
     Indication: ASPERGILLUS INFECTION
     Dosage: 200 MG, BID (IN THE MORNING AND IN THE EVENING)
     Route: 065
  2. RYDAPT [Interacting]
     Active Substance: MIDOSTAURIN
     Indication: ACUTE MYELOID LEUKAEMIA
     Dosage: 4 DF, QD
     Route: 065

REACTIONS (3)
  - Drug interaction [Unknown]
  - Contraindicated product administered [Unknown]
  - Aspergillus infection [Unknown]
